FAERS Safety Report 18202820 (Version 1)
Quarter: 2020Q3

REPORT INFORMATION
  Report Type: Report from Study
  Country: IN (occurrence: IN)
  Receive Date: 20200827
  Receipt Date: 20200827
  Transmission Date: 20201103
  Serious: Yes (Other)
  Sender: FDA-Public Use
  Company Number: PHHY2018IN112343

PATIENT
  Age: 53 Year
  Sex: Male
  Weight: 65 kg

DRUGS (4)
  1. TASIGNA [Suspect]
     Active Substance: NILOTINIB
     Dosage: 200 MG, BID
     Route: 048
     Dates: start: 20190416
  2. TASIGNA [Suspect]
     Active Substance: NILOTINIB
     Dosage: 600 MG, QD (400 MG IN MORNING AND 200 MG IN EVENING)
     Route: 048
     Dates: start: 20190207, end: 20190415
  3. TASIGNA [Suspect]
     Active Substance: NILOTINIB
     Indication: CHRONIC MYELOID LEUKAEMIA
     Dosage: 400 MG, BID
     Route: 048
     Dates: start: 20180903
  4. TASIGNA [Suspect]
     Active Substance: NILOTINIB
     Dosage: 200 MG, BID
     Route: 048
     Dates: start: 201809, end: 202004

REACTIONS (11)
  - Pyrexia [Recovered/Resolved with Sequelae]
  - Amnesia [Recovered/Resolved with Sequelae]
  - Pruritus [Recovering/Resolving]
  - Headache [Recovering/Resolving]
  - White blood cell count decreased [Unknown]
  - Memory impairment [Recovered/Resolved with Sequelae]
  - Hypoaesthesia [Recovered/Resolved with Sequelae]
  - Pain in extremity [Recovered/Resolved with Sequelae]
  - Product dose omission issue [Recovered/Resolved with Sequelae]
  - Pain [Recovered/Resolved with Sequelae]
  - Rash [Recovering/Resolving]

NARRATIVE: CASE EVENT DATE: 20180903
